FAERS Safety Report 20719211 (Version 2)
Quarter: 2022Q2

REPORT INFORMATION
  Report Type: Spontaneous
  Country: JP (occurrence: JP)
  Receive Date: 20220418
  Receipt Date: 20220420
  Transmission Date: 20220721
  Serious: Yes (Other)
  Sender: FDA-Public Use
  Company Number: JP-ADVANZ PHARMA-202204002256

PATIENT

DRUGS (2)
  1. PILOCARPINE [Suspect]
     Active Substance: PILOCARPINE
     Indication: Sjogren^s syndrome
     Dosage: UNK, SALAGEN
     Route: 048
  2. PILOCARPINE [Suspect]
     Active Substance: PILOCARPINE
     Indication: Dry mouth

REACTIONS (1)
  - Sjogren^s syndrome [Unknown]
